FAERS Safety Report 8011132-3 (Version None)
Quarter: 2011Q4

REPORT INFORMATION
  Report Type: 
  Country: None (occurrence: None)
  Receive Date: 20111222
  Receipt Date: 20111212
  Transmission Date: 20120403
  Serious: Yes (Hospitalization)
  Sender: FDA-Public Use
  Company Number: 2011-0679

PATIENT
  Age: 7 Year
  Sex: Male
  Weight: 15 kg

DRUGS (3)
  1. OTHER CHRONIC MEDICATIONS (ALL OTHER THERAPEUTIC PRODUCTS) [Concomitant]
  2. LEVOTHYROXINE SODIUM [Concomitant]
  3. INCRELEX [Suspect]
     Indication: FOETAL GROWTH RESTRICTION
     Dosage: 0.24 MG/KG (0.12 MG/KG,2 IN 1 D),SUBCUTANEOUS
     Route: 058
     Dates: start: 20100629, end: 20110101

REACTIONS (17)
  - LUNG DISORDER [None]
  - SPLENIC VARICES [None]
  - NASOPHARYNGITIS [None]
  - GASTROENTERITIS [None]
  - CYTOLYTIC HEPATITIS [None]
  - ANAEMIA [None]
  - FEBRILE CONVULSION [None]
  - HEPATIC CIRRHOSIS [None]
  - EAR INFECTION [None]
  - ESCHERICHIA TEST POSITIVE [None]
  - MALNUTRITION [None]
  - EPSTEIN-BARR VIRUS INFECTION [None]
  - BRONCHITIS [None]
  - CULTURE URINE POSITIVE [None]
  - PORTAL HYPERTENSION [None]
  - CEREBRAL ATROPHY [None]
  - TOXOPLASMOSIS [None]
